FAERS Safety Report 10158257 (Version 5)
Quarter: 2014Q3

REPORT INFORMATION
  Report Type: Report from Study
  Country: US (occurrence: US)
  Receive Date: 20140507
  Receipt Date: 20140723
  Transmission Date: 20150326
  Serious: Yes (Life-Threatening, Other)
  Sender: FDA-Public Use
  Company Number: US-FRI-1000059799

PATIENT
  Age: 13 Year
  Sex: Male
  Weight: 90.79 kg

DRUGS (3)
  1. SAPHRIS [Suspect]
     Active Substance: ASENAPINE MALEATE
     Indication: BIPOLAR I DISORDER
     Dosage: 10 MG
     Route: 060
     Dates: start: 20130507, end: 20130525
  2. ASENAPINE [Suspect]
     Active Substance: ASENAPINE
     Indication: BIPOLAR I DISORDER
     Dosage: 5 MG
     Route: 060
  3. VYVANSE [Concomitant]
     Active Substance: LISDEXAMFETAMINE DIMESYLATE
     Indication: ATTENTION DEFICIT/HYPERACTIVITY DISORDER
     Dosage: 60 MG
     Route: 048
     Dates: start: 20130507

REACTIONS (5)
  - Swollen tongue [Recovered/Resolved]
  - Drug hypersensitivity [Recovered/Resolved]
  - Drug hypersensitivity [Recovered/Resolved]
  - Swollen tongue [Recovered/Resolved]
  - Accidental overdose [Recovered/Resolved]

NARRATIVE: CASE EVENT DATE: 20130113
